FAERS Safety Report 8986635 (Version 4)
Quarter: 2013Q2

REPORT INFORMATION
  Report Type: Report from Study
  Country: CA (occurrence: CA)
  Receive Date: 20121226
  Receipt Date: 20130610
  Transmission Date: 20140414
  Serious: Yes (Hospitalization)
  Sender: FDA-Public Use
  Company Number: CA-ROCHE-1172130

PATIENT
  Age: 63 Year
  Sex: Female
  Weight: 70 kg

DRUGS (3)
  1. ACTEMRA [Suspect]
     Indication: RHEUMATOID ARTHRITIS
     Route: 042
     Dates: start: 20120517
  2. PREDNISONE [Concomitant]
  3. TYLENOL W CODEINE (CANADA) [Concomitant]

REACTIONS (3)
  - Osteoporosis [Recovering/Resolving]
  - Lower limb fracture [Unknown]
  - Pain [Unknown]
